FAERS Safety Report 20752146 (Version 2)
Quarter: 2022Q2

REPORT INFORMATION
  Report Type: Spontaneous
  Country: US (occurrence: US)
  Receive Date: 20220426
  Receipt Date: 20220510
  Transmission Date: 20220721
  Serious: Yes (Other)
  Sender: FDA-Public Use
  Company Number: US-NOVARTISTESTPH-NVSC2022US092109

PATIENT
  Sex: Male

DRUGS (2)
  1. VOTRIENT [Suspect]
     Active Substance: PAZOPANIB HYDROCHLORIDE
     Indication: Neurofibrosarcoma
     Dosage: 800 MG, QD
     Route: 048
     Dates: start: 20220407
  2. VOTRIENT [Suspect]
     Active Substance: PAZOPANIB HYDROCHLORIDE
     Dosage: 800 MG, QD
     Route: 048
     Dates: start: 20220408

REACTIONS (4)
  - Neurofibrosarcoma [Unknown]
  - Malignant neoplasm progression [Unknown]
  - Illness [Unknown]
  - Condition aggravated [Unknown]
